FAERS Safety Report 25723687 (Version 3)
Quarter: 2025Q4

REPORT INFORMATION
  Report Type: Spontaneous
  Country: BR (occurrence: None)
  Receive Date: 20250825
  Receipt Date: 20251209
  Transmission Date: 20260119
  Serious: Yes (Other)
  Sender: UCB
  Company Number: BR-UCBSA-2025052228

PATIENT
  Weight: 44 kg

DRUGS (3)
  1. KEPPRA XR [Suspect]
     Active Substance: LEVETIRACETAM
     Indication: Seizure
     Dosage: 750 MILLIGRAMS
  2. KEPPRA XR [Suspect]
     Active Substance: LEVETIRACETAM
     Dosage: 750 MILLIGRAMS
  3. KEPPRA [Suspect]
     Active Substance: LEVETIRACETAM
     Indication: Seizure
     Dosage: 250

REACTIONS (4)
  - Cerebrovascular accident [Unknown]
  - Product dispensing error [Unknown]
  - Product quality issue [Unknown]
  - Product availability issue [Unknown]
